FAERS Safety Report 4340756-X (Version None)
Quarter: 2004Q2

REPORT INFORMATION
  Report Type: 
  Country: None (occurrence: None)
  Receive Date: 20040414
  Receipt Date: 20040326
  Transmission Date: 20050107
  Serious: Yes (Hospitalization)
  Sender: FDA-Public Use
  Company Number: A02200303481

PATIENT
  Age: 80 Year
  Sex: Male

DRUGS (1)
  1. PLAVIX [Suspect]
     Dosage: ORAL
     Route: 048
     Dates: start: 20000101, end: 20031218

REACTIONS (2)
  - APLASIA [None]
  - MYELOID LEUKAEMIA [None]
